FAERS Safety Report 19230881 (Version 16)
Quarter: 2024Q3

REPORT INFORMATION
  Report Type: Report from Study
  Country: US (occurrence: US)
  Receive Date: 20210507
  Receipt Date: 20240823
  Transmission Date: 20241016
  Serious: Yes (Other)
  Sender: TAKEDA
  Company Number: US-TAKEDA-US202032247

PATIENT
  Sex: Female

DRUGS (5)
  1. HUMAN IMMUNOGLOBULIN G\HYALURONIDASE RECOMBINANT HUMAN [Suspect]
     Active Substance: HUMAN IMMUNOGLOBULIN G\HYALURONIDASE (HUMAN RECOMBINANT)
     Indication: Immunodeficiency common variable
     Dosage: 25 GRAM
     Route: 065
  2. HUMAN IMMUNOGLOBULIN G\HYALURONIDASE RECOMBINANT HUMAN [Suspect]
     Active Substance: HUMAN IMMUNOGLOBULIN G\HYALURONIDASE (HUMAN RECOMBINANT)
     Indication: Primary immunodeficiency syndrome
  3. CUVITRU [Suspect]
     Active Substance: HUMAN IMMUNOGLOBULIN G
     Indication: Immunodeficiency common variable
     Dosage: 8 GRAM, 1/WEEK
     Route: 058
  4. CUVITRU [Suspect]
     Active Substance: HUMAN IMMUNOGLOBULIN G
     Indication: Primary immunodeficiency syndrome
     Dosage: UNK
     Route: 058
  5. COVID-19 VACCINE NOS [Suspect]
     Active Substance: COVID-19 VACCINE
     Indication: COVID-19 immunisation
     Dosage: UNK
     Route: 065

REACTIONS (34)
  - Systemic lupus erythematosus [Unknown]
  - General physical health deterioration [Unknown]
  - Hepatic enzyme decreased [Unknown]
  - Herpes zoster [Unknown]
  - Nerve injury [Unknown]
  - Multiple allergies [Unknown]
  - Cardiac discomfort [Unknown]
  - Immunisation reaction [Unknown]
  - Skin laceration [Unknown]
  - Pain [Unknown]
  - Bone pain [Unknown]
  - Gait disturbance [Unknown]
  - Infusion related reaction [Unknown]
  - Immunoglobulins decreased [Unknown]
  - Arthropod bite [Unknown]
  - Full blood count abnormal [Unknown]
  - Blood potassium increased [Unknown]
  - Blood cholesterol increased [Unknown]
  - Thyroid disorder [Unknown]
  - Chills [Unknown]
  - Pain in extremity [Unknown]
  - Arthralgia [Unknown]
  - Rash [Unknown]
  - Infusion site bruising [Unknown]
  - Abdominal distension [Unknown]
  - Fatigue [Unknown]
  - Nausea [Unknown]
  - Infusion site pain [Not Recovered/Not Resolved]
  - Sinusitis [Unknown]
  - Bone density decreased [Unknown]
  - Joint stiffness [Unknown]
  - Fall [Unknown]
  - COVID-19 [Recovering/Resolving]
  - Dyspnoea [Unknown]
